FAERS Safety Report 7508748-7 (Version None)
Quarter: 2011Q2

REPORT INFORMATION
  Report Type: 
  Country: None (occurrence: None)
  Receive Date: 20110527
  Receipt Date: 20101213
  Transmission Date: 20111010
  Serious: No
  Sender: FDA-Public Use
  Company Number: A0899550A

PATIENT
  Age: 65 Year
  Sex: Female

DRUGS (3)
  1. VENTOLIN [Suspect]
     Indication: WHEEZING
     Dosage: 1PUFF AS REQUIRED
     Route: 055
     Dates: start: 20101101, end: 20101129
  2. TOPROL-XL [Concomitant]
  3. SOLAQUIN [Concomitant]

REACTIONS (1)
  - BLOOD PRESSURE INCREASED [None]
